FAERS Safety Report 7327266-2 (Version None)
Quarter: 2011Q1

REPORT INFORMATION
  Report Type: 
  Country: None (occurrence: None)
  Receive Date: 20110302
  Receipt Date: 20110223
  Transmission Date: 20110831
  Serious: Yes (Hospitalization, Other)
  Sender: FDA-Public Use
  Company Number: FR-PFIZER INC-2011022117

PATIENT
  Age: 29 Year
  Sex: Female

DRUGS (2)
  1. ADEPAL [Suspect]
     Indication: ORAL CONTRACEPTION
     Dosage: 1 DF, 1X/DAY
     Route: 048
     Dates: start: 20080701, end: 20090515
  2. TOPIRAMATE [Concomitant]
     Dosage: UNK
     Dates: start: 20070101

REACTIONS (1)
  - CYTOLYTIC HEPATITIS [None]
